APPROVED DRUG PRODUCT: ATROVENT
Active Ingredient: IPRATROPIUM BROMIDE
Strength: 0.018MG/INH
Dosage Form/Route: AEROSOL, METERED;INHALATION
Application: N019085 | Product #001
Applicant: BOEHRINGER INGELHEIM PHARMACEUTICALS INC
Approved: Dec 29, 1986 | RLD: No | RS: No | Type: DISCN